FAERS Safety Report 19144856 (Version 2)
Quarter: 2022Q2

REPORT INFORMATION
  Report Type: Report from Study
  Country: JP (occurrence: JP)
  Receive Date: 20210416
  Receipt Date: 20220520
  Transmission Date: 20220721
  Serious: Yes (Other)
  Sender: FDA-Public Use
  Company Number: JP-CELLTRION INC.-2021JP004912

PATIENT

DRUGS (10)
  1. INFLIXIMAB [Suspect]
     Active Substance: INFLIXIMAB
     Indication: Crohn^s disease
     Dosage: 310 MG (WEIGHT: 61.9 KG)
     Route: 041
     Dates: start: 20190109, end: 20190109
  2. INFLIXIMAB [Suspect]
     Active Substance: INFLIXIMAB
     Dosage: 315 MG (WEIGHT: 63.2 KG)
     Route: 041
     Dates: start: 20190306, end: 20190306
  3. INFLIXIMAB [Suspect]
     Active Substance: INFLIXIMAB
     Dosage: 310 MG (WEIGHT: 62 KG)
     Route: 041
     Dates: start: 20190509, end: 20190509
  4. INFLIXIMAB [Suspect]
     Active Substance: INFLIXIMAB
     Dosage: 300 MG (WEIGHT: 60.5 KG)
     Route: 041
     Dates: start: 20190702, end: 20190702
  5. INFLIXIMAB [Suspect]
     Active Substance: INFLIXIMAB
     Dosage: 310 MG (WEIGHT: 62.4 KG)
     Route: 041
     Dates: start: 20200107, end: 20200107
  6. INFLIXIMAB [Suspect]
     Active Substance: INFLIXIMAB
     Dosage: 305 MG (WEIGHT: 61 KG)
     Route: 041
     Dates: start: 20201226, end: 20201226
  7. INFLIXIMAB [Suspect]
     Active Substance: INFLIXIMAB
     Dosage: 320 MG (WEIGHT: 64 KG)
     Route: 041
     Dates: start: 20220108, end: 20220108
  8. AZATHIOPRINE [Concomitant]
     Active Substance: AZATHIOPRINE
     Dosage: 100 MILLIGRAM/DAY
     Route: 048
  9. MESALAMINE [Concomitant]
     Active Substance: MESALAMINE
     Indication: Colitis ulcerative
     Dosage: 1000 MILLIGRAM, QD
     Dates: start: 20200704
  10. MESALAMINE [Concomitant]
     Active Substance: MESALAMINE
     Dosage: 2000 MILLIGRAM, QD
     Dates: start: 20200704

REACTIONS (4)
  - Enteritis infectious [Recovered/Resolved]
  - Subileus [Recovered/Resolved]
  - Pyrexia [Recovered/Resolved]
  - Off label use [Unknown]

NARRATIVE: CASE EVENT DATE: 20190509
